FAERS Safety Report 9227148 (Version 2)
Quarter: 2013Q2

REPORT INFORMATION
  Report Type: Report from Study
  Country: CA (occurrence: CA)
  Receive Date: 20130412
  Receipt Date: 20130430
  Transmission Date: 20140414
  Serious: Yes (Hospitalization)
  Sender: FDA-Public Use
  Company Number: CA-JNJFOC-20130403324

PATIENT
  Age: 55 Year
  Sex: Male
  Weight: 80.74 kg

DRUGS (11)
  1. REMICADE [Suspect]
     Indication: RHEUMATOID ARTHRITIS
     Dosage: 500 MG EVERY 6 WEEKS/52
     Route: 042
     Dates: start: 200801
  2. NOVO-SEMIDE [Concomitant]
     Dosage: ONE TABLET WITH BREAKFAST
     Route: 065
  3. ATORVASTATIN [Concomitant]
     Route: 065
  4. ASAPHEN [Concomitant]
     Route: 065
  5. AMPLODIPIN [Concomitant]
     Route: 065
  6. COVERSYL [Concomitant]
     Route: 065
  7. LYRICA [Concomitant]
     Indication: PAIN
     Route: 065
  8. APO-METOPROLOL [Concomitant]
     Route: 065
  9. NEXIUM [Concomitant]
     Indication: GASTRIC DISORDER
     Dosage: 1OR 2 TIMES  DAILY 30 MINUTED BEFORE BREAKFAST OR DINNER
     Route: 048
  10. NAPROXEN [Concomitant]
     Dosage: 375 (UNSPEICIFED UNITS) TWICE A DAY OR TAKEN AS NECESSARY
     Route: 065
  11. MTX [Concomitant]
     Dosage: DOSE- 0.8 (UNSPECIFIED UNITS)
     Route: 058

REACTIONS (2)
  - Dysphagia [Unknown]
  - Chest pain [Unknown]
